FAERS Safety Report 7075011-0 (Version None)
Quarter: 2010Q4

REPORT INFORMATION
  Report Type: 
  Country: None (occurrence: None)
  Receive Date: 20101029
  Receipt Date: 20100115
  Transmission Date: 20110411
  Serious: No
  Sender: FDA-Public Use
  Company Number: US-WYE-H12357109

PATIENT
  Age: 72 Year
  Sex: Male
  Weight: 77.18 kg

DRUGS (4)
  1. ADVIL PM [Suspect]
     Indication: INSOMNIA
     Route: 048
     Dates: start: 20091123, end: 20091123
  2. ADVIL PM [Suspect]
     Indication: HEADACHE
  3. RANITIDINE HYDROCHLORIDE [Concomitant]
  4. TERAZOSIN HCL [Concomitant]

REACTIONS (1)
  - DRUG INEFFECTIVE [None]
